FAERS Safety Report 5718510-3 (Version None)
Quarter: 2008Q2

REPORT INFORMATION
  Report Type: 
  Country: None (occurrence: None)
  Receive Date: 20080425
  Receipt Date: 20080415
  Transmission Date: 20081010
  Serious: Yes (Hospitalization, Other)
  Sender: FDA-Public Use
  Company Number: US-PFIZER INC-2008032135

PATIENT
  Sex: Male
  Weight: 81.818 kg

DRUGS (13)
  1. LIPITOR [Suspect]
     Indication: BLOOD CHOLESTEROL ABNORMAL
     Route: 048
  2. CLARITHROMYCIN [Interacting]
     Indication: HELICOBACTER INFECTION
  3. VITAMINS [Concomitant]
  4. CITALOPRAM HYDROBROMIDE [Concomitant]
  5. OMEPRAZOLE [Concomitant]
  6. PLAVIX [Concomitant]
  7. ACETYLSALICYLIC ACID SRT [Concomitant]
  8. VACCINIUM MACROCARPON [Concomitant]
     Indication: URINARY TRACT DISORDER
  9. FISH OIL [Concomitant]
  10. METOPROLOL TARTRATE [Concomitant]
  11. ZYRTEC [Concomitant]
     Indication: HYPERSENSITIVITY
  12. ANTIDEPRESSANTS [Concomitant]
     Indication: DEPRESSION
  13. ALL OTHER THERAPEUTIC PRODUCTS [Concomitant]
     Indication: GASTROOESOPHAGEAL REFLUX DISEASE

REACTIONS (10)
  - AMNESIA [None]
  - APHASIA [None]
  - ASTHENIA [None]
  - BALANCE DISORDER [None]
  - DRUG INTERACTION [None]
  - FALL [None]
  - HEADACHE [None]
  - HELICOBACTER INFECTION [None]
  - INCOHERENT [None]
  - WRONG TECHNIQUE IN DRUG USAGE PROCESS [None]
